FAERS Safety Report 9980423 (Version 7)
Quarter: 2014Q2

REPORT INFORMATION
  Report Type: Spontaneous
  Country: ES (occurrence: ES)
  Receive Date: 20140307
  Receipt Date: 20140515
  Transmission Date: 20141212
  Serious: Yes (Hospitalization, Other)
  Sender: FDA-Public Use
  Company Number: 2014SP000886

PATIENT
  Age: 60 Year
  Sex: Female

DRUGS (34)
  1. CISPLATIN [Suspect]
     Indication: BLADDER CANCER
     Route: 042
     Dates: start: 20140122, end: 20140220
  2. CISPLATIN [Suspect]
     Indication: BLADDER CANCER
     Route: 042
     Dates: start: 20140312, end: 20140312
  3. CISPLATIN [Suspect]
     Indication: BLADDER CANCER
     Dates: start: 20140404
  4. GEMCITABINE [Suspect]
     Indication: BLADDER CANCER
     Route: 042
     Dates: start: 20140122, end: 20140129
  5. GEMCITABINE [Suspect]
     Indication: BLADDER CANCER
     Route: 042
     Dates: start: 20140220, end: 20140220
  6. GEMCITABINE [Suspect]
     Indication: BLADDER CANCER
     Route: 042
     Dates: start: 20140312, end: 20140312
  7. ERIBULIN MESILATE [Suspect]
     Indication: BLADDER CANCER
     Route: 042
     Dates: start: 20140122, end: 20140129
  8. ERIBULIN MESILATE [Suspect]
     Indication: BLADDER CANCER
     Route: 042
     Dates: start: 20140220, end: 20140220
  9. ERIBULIN MESILATE [Suspect]
     Indication: BLADDER CANCER
     Route: 042
     Dates: start: 20140312, end: 20140312
  10. VENLAFAXINE [Concomitant]
     Indication: DEPRESSION
     Dates: start: 2003
  11. GABAPENTINE [Concomitant]
     Indication: NEURALGIA
     Dates: start: 20140110
  12. INDOMETACIN [Concomitant]
     Indication: TUMOUR PAIN
     Route: 048
     Dates: start: 20140110
  13. OMEPRAZOLE [Concomitant]
     Indication: PROPHYLAXIS AGAINST GASTROINTESTINAL ULCER
     Route: 048
     Dates: start: 20140104
  14. VALSARTAN [Concomitant]
     Indication: HYPERTENSION
     Dates: start: 201301
  15. TRAMADOL [Concomitant]
     Indication: TUMOUR PAIN
     Dates: start: 20140107
  16. ACETAMINOPHEN [Concomitant]
     Indication: TUMOUR PAIN
     Route: 048
     Dates: start: 20140107
  17. DEXCHLORPHENIRAMINE [Concomitant]
     Dates: start: 20140203, end: 20140206
  18. RANITIDINE [Concomitant]
     Dates: start: 20140203, end: 20140204
  19. METHYLPREDNISOLONE [Concomitant]
     Dates: start: 20140203, end: 20140206
  20. CAPTOPRIL [Concomitant]
     Dates: start: 20140203, end: 20140203
  21. LACTULOSE [Concomitant]
     Dates: start: 20140203, end: 20140327
  22. LACTULOSE [Concomitant]
  23. METOCLOPRAMIDE HYDROCHLORIDE [Concomitant]
     Dates: start: 20140203, end: 20140211
  24. ACETYLCYSTEIN AL [Concomitant]
     Dates: start: 20140205, end: 20140210
  25. MYCOSTATIN [Concomitant]
  26. ALPRAZOLAM [Concomitant]
     Dates: start: 2003
  27. METAMIZOLE MAGNESIUM [Concomitant]
     Dates: start: 20140225
  28. SODIUM PHOSPHATE DIBASIC [Concomitant]
     Dates: start: 20140226, end: 20140226
  29. POTASSIUM CHLORIDE [Concomitant]
     Dates: start: 20140227, end: 20140303
  30. AMLODIPINE [Concomitant]
     Indication: HYPERTENSION
     Dates: start: 20140301, end: 20140305
  31. BEMIPARIN [Concomitant]
     Route: 058
     Dates: start: 20140304
  32. FUROSEMIDE /00032602/ [Concomitant]
     Indication: OEDEMA
     Dates: start: 20140303, end: 20140303
  33. LORAZEPAM [Concomitant]
     Dates: start: 20140225, end: 20140305
  34. APREPITANT [Concomitant]
     Dates: start: 20140220

REACTIONS (24)
  - Pancytopenia [Unknown]
  - Neutropenia [Recovered/Resolved]
  - Thrombocytopenia [Recovered/Resolved]
  - Anaemia [Unknown]
  - Syncope [Unknown]
  - Dizziness [Unknown]
  - Loss of consciousness [Unknown]
  - Bladder sphincter atony [Unknown]
  - Vomiting [Recovered/Resolved]
  - Abdominal pain [Unknown]
  - Oesophagitis [Unknown]
  - Erosive duodenitis [Unknown]
  - Chronic gastritis [Unknown]
  - Renal failure [Recovered/Resolved]
  - Dehydration [Recovered/Resolved]
  - Nausea [Unknown]
  - Asthenia [Unknown]
  - Abdominal pain upper [Unknown]
  - Anxiety [Unknown]
  - Constipation [Unknown]
  - Injury [Unknown]
  - Fall [Unknown]
  - Deep vein thrombosis [Recovered/Resolved]
  - Pain in extremity [Recovered/Resolved]
